FAERS Safety Report 20642307 (Version 1)
Quarter: 2022Q1

REPORT INFORMATION
  Report Type: Spontaneous
  Country: HR (occurrence: HR)
  Receive Date: 20220328
  Receipt Date: 20220328
  Transmission Date: 20220424
  Serious: Yes (Other)
  Sender: FDA-Public Use
  Company Number: HR-ASTELLAS-2022US010530

PATIENT
  Sex: Male

DRUGS (24)
  1. XTANDI [Suspect]
     Active Substance: ENZALUTAMIDE
     Indication: Prostate cancer
     Dosage: 160 MG, ONCE DAILY (4 TABLET OF 40 MG) FOR 3 MONTHS
     Route: 065
     Dates: start: 201807, end: 202201
  2. ELIGARD [Suspect]
     Active Substance: LEUPROLIDE ACETATE
     Indication: Prostate cancer
     Dosage: UNK UNK, UNKNOWN FREQ.
     Route: 065
     Dates: start: 201402
  3. ELIGARD [Suspect]
     Active Substance: LEUPROLIDE ACETATE
     Dosage: UNK UNK, UNKNOWN FREQ.
     Route: 065
     Dates: start: 201405
  4. ELIGARD [Suspect]
     Active Substance: LEUPROLIDE ACETATE
     Dosage: UNK UNK, UNKNOWN FREQ.
     Route: 065
     Dates: start: 201408
  5. ELIGARD [Suspect]
     Active Substance: LEUPROLIDE ACETATE
     Dosage: UNK UNK, UNKNOWN FREQ.
     Route: 065
     Dates: start: 201502
  6. ELIGARD [Suspect]
     Active Substance: LEUPROLIDE ACETATE
     Dosage: UNK UNK, UNKNOWN FREQ.
     Route: 065
     Dates: start: 201508
  7. ELIGARD [Suspect]
     Active Substance: LEUPROLIDE ACETATE
     Dosage: UNK UNK, UNKNOWN FREQ.
     Route: 065
     Dates: start: 201511
  8. ELIGARD [Suspect]
     Active Substance: LEUPROLIDE ACETATE
     Dosage: UNK UNK, UNKNOWN FREQ.
     Route: 065
     Dates: start: 201512
  9. ELIGARD [Suspect]
     Active Substance: LEUPROLIDE ACETATE
     Dosage: UNK UNK, UNKNOWN FREQ.
     Route: 065
     Dates: start: 201604
  10. ELIGARD [Suspect]
     Active Substance: LEUPROLIDE ACETATE
     Dosage: UNK UNK, UNKNOWN FREQ.
     Route: 065
     Dates: start: 201610
  11. ELIGARD [Suspect]
     Active Substance: LEUPROLIDE ACETATE
     Dosage: UNK UNK, UNKNOWN FREQ.
     Route: 065
     Dates: start: 201702
  12. ELIGARD [Suspect]
     Active Substance: LEUPROLIDE ACETATE
     Dosage: UNK UNK, UNKNOWN FREQ.
     Route: 065
     Dates: start: 201704
  13. ELIGARD [Suspect]
     Active Substance: LEUPROLIDE ACETATE
     Dosage: UNK UNK, UNKNOWN FREQ. (FOR 6 MONTHS)
     Route: 065
     Dates: start: 201707
  14. ELIGARD [Suspect]
     Active Substance: LEUPROLIDE ACETATE
     Dosage: UNK UNK, UNKNOWN FREQ. (CONTINUED FOR 6 MONTHS VIA DAY HOSPITAL)
     Route: 065
     Dates: start: 202103
  15. ESTRAMUSTINE [Concomitant]
     Active Substance: ESTRAMUSTINE
     Indication: Product used for unknown indication
     Dosage: UNK UNK, UNKNOWN FREQ.
     Route: 065
     Dates: start: 201511
  16. ESTRAMUSTINE [Concomitant]
     Active Substance: ESTRAMUSTINE
     Dosage: UNK UNK, UNKNOWN FREQ.
     Route: 065
     Dates: start: 201512
  17. ESTRAMUSTINE [Concomitant]
     Active Substance: ESTRAMUSTINE
     Dosage: UNK UNK, UNKNOWN FREQ.
     Route: 065
     Dates: start: 201604
  18. ESTRAMUSTINE [Concomitant]
     Active Substance: ESTRAMUSTINE
     Dosage: UNK UNK, UNKNOWN FREQ.
     Route: 065
     Dates: start: 201610
  19. ESTRAMUSTINE [Concomitant]
     Active Substance: ESTRAMUSTINE
     Dosage: UNK UNK, UNKNOWN FREQ.
     Route: 065
     Dates: start: 201702
  20. BIXALAN [Concomitant]
     Indication: Hormone therapy
     Dosage: UNK UNK, UNKNOWN FREQ.
     Route: 065
     Dates: start: 2011, end: 2012
  21. BIXALAN [Concomitant]
     Dosage: UNK UNK, UNKNOWN FREQ.
     Route: 065
     Dates: start: 201704
  22. BIXALAN [Concomitant]
     Dosage: UNK UNK, UNKNOWN FREQ.
     Route: 065
     Dates: start: 201707
  23. RAMIPRIL [Concomitant]
     Active Substance: RAMIPRIL
     Indication: Product used for unknown indication
     Dosage: UNK UNK, UNKNOWN FREQ.
     Route: 065
     Dates: start: 201803
  24. GLYBURIDE [Concomitant]
     Active Substance: GLYBURIDE
     Indication: Product used for unknown indication
     Dosage: UNK UNK, UNKNOWN FREQ.
     Route: 065
     Dates: start: 201803

REACTIONS (14)
  - Prostate cancer [Unknown]
  - Renal mass [Unknown]
  - Fatigue [Unknown]
  - Insomnia [Unknown]
  - Vertebral lesion [Unknown]
  - Splenomegaly [Unknown]
  - Arthralgia [Unknown]
  - Bone lesion [Unknown]
  - Bone pain [Unknown]
  - Asthenia [Unknown]
  - Paraesthesia [Unknown]
  - Nail disorder [Unknown]
  - Urinary incontinence [Unknown]
  - Bone marrow oedema [Unknown]

NARRATIVE: CASE EVENT DATE: 20170801
